FAERS Safety Report 18106144 (Version 10)
Quarter: 2022Q2

REPORT INFORMATION
  Report Type: Report from Study
  Country: DE (occurrence: DE)
  Receive Date: 20200803
  Receipt Date: 20220602
  Transmission Date: 20220721
  Serious: Yes (Other)
  Sender: FDA-Public Use
  Company Number: DE-002147023-NVSC2019DE077269

PATIENT
  Sex: Female
  Weight: 91 kg

DRUGS (11)
  1. ANASTROZOLE [Suspect]
     Active Substance: ANASTROZOLE
     Indication: Breast cancer metastatic
     Dosage: 1 MG, QD (IN COMBINATION WITH RIBOCICLIB)  (LAST DOSE WAS ON 21 APR 2020)
     Route: 048
     Dates: start: 20191201
  2. ANASTROZOLE [Suspect]
     Active Substance: ANASTROZOLE
     Dosage: 600 MG, QD (SCHEMA 21 DAYS INTAKE, 7 DAYS PAUSE)
     Route: 048
     Dates: start: 20191201, end: 20191219
  3. ANASTROZOLE [Suspect]
     Active Substance: ANASTROZOLE
     Dosage: 400 MG, QD (SCHEMA 21 DAYS INTAKE, 7 DAYS PAUSE)07-JAN-2020
     Route: 048
     Dates: end: 20200224
  4. ANASTROZOLE [Suspect]
     Active Substance: ANASTROZOLE
     Dosage: 200 MG, QD (SCHEMA 21 DAYS INTAKE, 7 DAYS PAUSE)25-FEB-2020
     Route: 048
     Dates: end: 20200421
  5. KISQALI [Suspect]
     Active Substance: RIBOCICLIB
     Indication: Breast cancer metastatic
     Dosage: 600 MG, QD (SCHEMA 21 DAYS INTAKE, 7 DAYS PAUSE)
     Route: 048
     Dates: start: 20191201, end: 20191219
  6. KISQALI [Suspect]
     Active Substance: RIBOCICLIB
     Dosage: 400 MG, QD (SCHEMA 21 DAYS INTAKE, 7 DAYS PAUSE)07-JAN-2020
     Route: 048
     Dates: end: 20200224
  7. KISQALI [Suspect]
     Active Substance: RIBOCICLIB
     Dosage: 600 MG, QD (SCHEMA 21 DAYS INTAKE, 7 DAYS PAUSE)08-JAN-2020
     Route: 048
  8. KISQALI [Suspect]
     Active Substance: RIBOCICLIB
     Dosage: 200 MG, QD (SCHEMA 21 DAYS INTAKE, 7 DAYS PAUSE)25-FEB-2020
     Route: 048
     Dates: end: 20200421
  9. KISQALI [Suspect]
     Active Substance: RIBOCICLIB
     Dosage: 1 MG, QD (DAILY DOSE)START:22-APR-2020
     Route: 048
  10. PALBOCICLIB [Concomitant]
     Active Substance: PALBOCICLIB
     Indication: Breast cancer metastatic
     Dosage: 75 MILLIGRAM, 75 MG
     Route: 065
  11. PALBOCICLIB [Concomitant]
     Active Substance: PALBOCICLIB
     Dosage: 75 MG (SCHEMA 21 DAYS INTAKE, 7 DAYS PAUSE)15-DEC-2020
     Route: 048

REACTIONS (4)
  - White blood cell count decreased [Unknown]
  - Leukopenia [Recovered/Resolved]
  - Thrombocytopenia [Recovered/Resolved]
  - Neutropenia [Not Recovered/Not Resolved]

NARRATIVE: CASE EVENT DATE: 20191217
